FAERS Safety Report 17246702 (Version 4)
Quarter: 2020Q2

REPORT INFORMATION
  Report Type: Spontaneous
  Country: PR (occurrence: PR)
  Receive Date: 20200108
  Receipt Date: 20200612
  Transmission Date: 20200713
  Serious: No
  Sender: FDA-Public Use
  Company Number: PR-PFIZER INC-2020003382

PATIENT
  Age: 52 Year
  Sex: Male

DRUGS (3)
  1. LYRICA CR [Suspect]
     Active Substance: PREGABALIN
     Dosage: 100 MG, 1X/DAY(Q (EVERY) AM )
     Route: 048
  2. LYRICA CR [Suspect]
     Active Substance: PREGABALIN
     Dosage: 165 MG, 2X/DAY (TAKE 1 PO BID)
     Route: 048
  3. LYRICA CR [Suspect]
     Active Substance: PREGABALIN
     Dosage: 200 MG, 1X/DAY( Q HS (EVERY BEDTIME)
     Route: 048

REACTIONS (1)
  - Pain [Unknown]
